FAERS Safety Report 7809469-3 (Version None)
Quarter: 2011Q4

REPORT INFORMATION
  Report Type: 
  Country: None (occurrence: None)
  Receive Date: 20111012
  Receipt Date: 20110929
  Transmission Date: 20120403
  Serious: Yes (Hospitalization)
  Sender: FDA-Public Use
  Company Number: PHHY2011JP86967

PATIENT
  Age: 72 Year
  Sex: Female

DRUGS (2)
  1. TEGRETOL [Suspect]
     Indication: TRIGEMINAL NEURALGIA
     Dosage: 600 MG, UNK
     Route: 048
     Dates: start: 20110420, end: 20110508
  2. TEGRETOL [Suspect]
     Dosage: 600 MG, UNK
     Route: 048
     Dates: end: 20110606

REACTIONS (2)
  - TUBULOINTERSTITIAL NEPHRITIS [None]
  - LIVER DISORDER [None]
